FAERS Safety Report 24229235 (Version 1)
Quarter: 2024Q3

REPORT INFORMATION
  Report Type: Spontaneous
  Country: US (occurrence: US)
  Receive Date: 20240820
  Receipt Date: 20240820
  Transmission Date: 20241017
  Serious: Yes (Other)
  Sender: BIOMARIN
  Company Number: US-SA-SAC20240813000664

PATIENT

DRUGS (1)
  1. LARONIDASE [Suspect]
     Active Substance: LARONIDASE
     Indication: Mucopolysaccharidosis I
     Dosage: 11.6 (UNITS NOT PROVIDED), QW
     Route: 042
     Dates: start: 202303

REACTIONS (1)
  - Spinal decompression [Recovered/Resolved]

NARRATIVE: CASE EVENT DATE: 20240701
